FAERS Safety Report 10913894 (Version 3)
Quarter: 2017Q1

REPORT INFORMATION
  Report Type: Spontaneous
  Country: US (occurrence: US)
  Receive Date: 20150313
  Receipt Date: 20170202
  Transmission Date: 20170428
  Serious: Yes (Hospitalization, Other)
  Sender: FDA-Public Use
  Company Number: US-ELI_LILLY_AND_COMPANY-US201503000498

PATIENT
  Age: 39 Year
  Sex: Female

DRUGS (5)
  1. CYMBALTA [Suspect]
     Active Substance: DULOXETINE HYDROCHLORIDE
     Dosage: 120 MG, QD
     Route: 048
  2. CYMBALTA [Suspect]
     Active Substance: DULOXETINE HYDROCHLORIDE
     Dosage: 30 MG, UNKNOWN
     Route: 065
  3. SEROQUEL [Concomitant]
     Active Substance: QUETIAPINE FUMARATE
     Indication: PRODUCT USED FOR UNKNOWN INDICATION
     Dosage: 100 MG, EACH EVENING
     Route: 048
     Dates: start: 201303
  4. CYMBALTA [Suspect]
     Active Substance: DULOXETINE HYDROCHLORIDE
     Indication: DEPRESSION
     Dosage: UNK, UNKNOWN
     Route: 065
     Dates: start: 201208
  5. CYMBALTA [Suspect]
     Active Substance: DULOXETINE HYDROCHLORIDE
     Dosage: 20 MG, QD
     Route: 048

REACTIONS (23)
  - Drug withdrawal syndrome [Unknown]
  - Paraesthesia [Unknown]
  - Nausea [Unknown]
  - Anxiety [Unknown]
  - Abnormal dreams [Unknown]
  - Dizziness [Unknown]
  - Dysphoria [Unknown]
  - Intentional self-injury [Unknown]
  - Irritability [Unknown]
  - Depression [Unknown]
  - Nightmare [Unknown]
  - Headache [Unknown]
  - Suicidal ideation [Unknown]
  - Vertigo [Unknown]
  - Agitation [Unknown]
  - Suicide attempt [Unknown]
  - Insomnia [Unknown]
  - Drug hypersensitivity [Unknown]
  - Crying [Unknown]
  - Mood swings [Unknown]
  - Sleep disorder [Unknown]
  - Hyperhidrosis [Unknown]
  - Aggression [Unknown]

NARRATIVE: CASE EVENT DATE: 201303
